FAERS Safety Report 9078258 (Version 1)
Quarter: 2013Q1

REPORT INFORMATION
  Report Type: Report from Study
  Country: US (occurrence: US)
  Receive Date: 20130130
  Receipt Date: 20130130
  Transmission Date: 20140127
  Serious: No
  Sender: FDA-Public Use
  Company Number: US-ABBOTT-12P-163-0921527-00

PATIENT
  Age: 33 Year
  Sex: Female

DRUGS (6)
  1. HUMIRA 40 MG/0.8 ML PEN [Suspect]
     Indication: CROHN^S DISEASE
     Dates: start: 20120329, end: 20120329
  2. HUMIRA 40 MG/0.8 ML PEN [Suspect]
     Dates: start: 20120330, end: 20120330
  3. HUMIRA 40 MG/0.8 ML PEN [Suspect]
     Dates: start: 201203
  4. VITAMIN D3 [Concomitant]
     Indication: VITAMIN SUPPLEMENTATION
  5. LIVALO [Concomitant]
     Indication: BLOOD CHOLESTEROL INCREASED
     Dates: start: 20120327
  6. ZOLOFT [Concomitant]
     Indication: ANXIETY
     Dosage: SUPPOSED TO BE QD BUT TAKES 2X A WEEK

REACTIONS (13)
  - Fatigue [Not Recovered/Not Resolved]
  - Injection site pruritus [Not Recovered/Not Resolved]
  - Injection site erythema [Not Recovered/Not Resolved]
  - Tremor [Not Recovered/Not Resolved]
  - Injection site pruritus [Unknown]
  - Nasopharyngitis [Recovering/Resolving]
  - Cough [Recovering/Resolving]
  - Wheezing [Recovering/Resolving]
  - Nasopharyngitis [Recovering/Resolving]
  - Ear infection [Recovering/Resolving]
  - Ear pain [Recovering/Resolving]
  - Ear discomfort [Recovering/Resolving]
  - Ear infection [Recovering/Resolving]
